FAERS Safety Report 4398995-8 (Version None)
Quarter: 2004Q3

REPORT INFORMATION
  Report Type: 
  Country: None (occurrence: None)
  Receive Date: 20040712
  Receipt Date: 20040706
  Transmission Date: 20050211
  Serious: Yes (Life-Threatening, Hospitalization, Other)
  Sender: FDA-Public Use
  Company Number: HWYE542822JUN04

PATIENT
  Age: 57 Year
  Sex: Male
  Weight: 136.65 kg

DRUGS (23)
  1. RAPAMUNE [Suspect]
     Indication: PROPHYLAXIS AGAINST TRANSPLANT REJECTION
     Dosage: (CONCENTRATION CONTROLLED), ORAL
     Route: 048
     Dates: start: 20040324, end: 20040422
  2. ALLOPURINOL [Concomitant]
  3. CALCITROL (CALCIUM CARBONATE/ERGOCALCIFEROL/RETINOL) [Concomitant]
  4. NPH INSULIN [Concomitant]
  5. PREVACID [Concomitant]
  6. ASPIRIN [Concomitant]
  7. IRON BILE SALTS (IRON BILE SALTS) [Concomitant]
  8. ZOROXOLYN (METOLAZONE) [Concomitant]
  9. ANDROGEL [Concomitant]
  10. ATIVAN [Concomitant]
  11. ARANESP [Concomitant]
  12. RENAGEL (SEVELAMER) [Concomitant]
  13. TIAZAC [Concomitant]
  14. DIOVAN [Concomitant]
  15. TOPROL-XL [Concomitant]
  16. NORVASC [Concomitant]
  17. LOPID [Concomitant]
  18. PRANDIN [Concomitant]
  19. NEORAL [Concomitant]
  20. LIPITOR [Concomitant]
  21. LASIX [Concomitant]
  22. HYDRALAZINE HCL TAB [Concomitant]
  23. MAGNESIUM (MAGNESIUM) [Concomitant]

REACTIONS (5)
  - AMNESIA [None]
  - AZOTAEMIA [None]
  - CARDIOMEGALY [None]
  - CONCOMITANT DISEASE PROGRESSION [None]
  - RENAL FAILURE [None]
